FAERS Safety Report 8612871-3 (Version None)
Quarter: 2012Q3

REPORT INFORMATION
  Report Type: 
  Country: None (occurrence: None)
  Receive Date: 20120822
  Receipt Date: 20110818
  Transmission Date: 20120928
  Serious: No
  Sender: FDA-Public Use
  Company Number: US-ASTRAZENECA-2011SE42886

PATIENT
  Age: 51 Year
  Sex: Female

DRUGS (6)
  1. PROZAC [Concomitant]
  2. ALLERGY MEDICATION [Suspect]
     Route: 065
  3. CRESTOR [Suspect]
     Route: 048
  4. XANAX [Concomitant]
  5. NEXIUM [Suspect]
     Route: 048
  6. SYMBICORT [Suspect]
     Dosage: 160/4.5MCG DAILY
     Route: 055

REACTIONS (5)
  - TOOTH DISORDER [None]
  - BLOOD PRESSURE INCREASED [None]
  - PANIC ATTACK [None]
  - RHEUMATOID ARTHRITIS [None]
  - CYANOSIS [None]
